FAERS Safety Report 16369638 (Version 2)
Quarter: 2019Q2

REPORT INFORMATION
  Report Type: Spontaneous
  Country: US (occurrence: US)
  Receive Date: 20190530
  Receipt Date: 20190530
  Transmission Date: 20190711
  Serious: Yes (Hospitalization, Other)
  Sender: FDA-Public Use
  Company Number: PHEH2019US022290

PATIENT
  Sex: Female

DRUGS (12)
  1. FLAXSEED [Concomitant]
     Active Substance: FLAX SEED
     Indication: PRODUCT USED FOR UNKNOWN INDICATION
     Dosage: UNK
     Route: 065
     Dates: start: 1998
  2. OMEGA 3 [Concomitant]
     Active Substance: OMEGA-3 FATTY ACIDS
     Indication: PRODUCT USED FOR UNKNOWN INDICATION
     Dosage: UNK
     Route: 065
     Dates: start: 1998
  3. ZOMETA [Suspect]
     Active Substance: ZOLEDRONIC ACID
     Indication: PROPHYLAXIS
     Dosage: TAKE EVERY 13 WEEKS
     Route: 065
     Dates: start: 20181127
  4. LETROZOLE. [Suspect]
     Active Substance: LETROZOLE
     Indication: BREAST CANCER STAGE IV
     Dosage: 2.5 MG, QD
     Route: 065
     Dates: start: 20181121
  5. SPIRONOLACTONE. [Suspect]
     Active Substance: SPIRONOLACTONE
     Indication: MENIERE^S DISEASE
     Dosage: 25 MG, QD (2* PER DAY)
     Route: 065
     Dates: start: 1992
  6. VITAMIN E [Concomitant]
     Active Substance: .ALPHA.-TOCOPHEROL
     Indication: PRODUCT USED FOR UNKNOWN INDICATION
     Dosage: UNK
     Route: 065
     Dates: start: 1998
  7. LOVASTATIN. [Suspect]
     Active Substance: LOVASTATIN
     Indication: BLOOD CHOLESTEROL INCREASED
     Dosage: 40 MG, QD
     Route: 065
     Dates: start: 2000
  8. DULCOLAX NOS [Concomitant]
     Active Substance: BISACODYL OR DOCUSATE SODIUM
     Indication: ABDOMINAL DISCOMFORT
     Dosage: UNK
     Route: 065
     Dates: start: 2018
  9. IBRANCE [Suspect]
     Active Substance: PALBOCICLIB
     Indication: BREAST CANCER STAGE IV
     Dosage: 21 DAYS CYCLE OF 100 MG AND 7 DAYS OFF
     Route: 065
     Dates: start: 20181121
  10. PRILOSEC [Concomitant]
     Active Substance: OMEPRAZOLE MAGNESIUM
     Indication: ABDOMINAL DISCOMFORT
     Dosage: UNK UNK, QD
     Route: 065
  11. VIT D [Concomitant]
     Active Substance: VITAMIN D NOS
     Indication: PRODUCT USED FOR UNKNOWN INDICATION
     Dosage: UNK
     Route: 065
     Dates: start: 1998
  12. VITAMIN C [Concomitant]
     Active Substance: ASCORBIC ACID
     Indication: PRODUCT USED FOR UNKNOWN INDICATION
     Dosage: UNK
     Route: 065
     Dates: start: 1998

REACTIONS (23)
  - Dehydration [Not Recovered/Not Resolved]
  - Chills [Recovering/Resolving]
  - Metastases to bone [Unknown]
  - Hot flush [Not Recovered/Not Resolved]
  - Inappropriate schedule of product administration [Unknown]
  - Intestinal metastasis [Unknown]
  - Joint stiffness [Not Recovered/Not Resolved]
  - Kidney infection [Not Recovered/Not Resolved]
  - Burning sensation [Recovering/Resolving]
  - Visual impairment [Not Recovered/Not Resolved]
  - Sepsis [Unknown]
  - Body temperature increased [Not Recovered/Not Resolved]
  - Bone pain [Unknown]
  - Stomatitis [Recovering/Resolving]
  - Abdominal pain [Recovering/Resolving]
  - Pyrexia [Not Recovered/Not Resolved]
  - Decreased appetite [Recovering/Resolving]
  - Urinary tract infection [Not Recovered/Not Resolved]
  - Metastases to peritoneum [Unknown]
  - Gastrointestinal pain [Not Recovered/Not Resolved]
  - Alopecia [Not Recovered/Not Resolved]
  - Muscle strain [Recovering/Resolving]
  - Arthralgia [Not Recovered/Not Resolved]

NARRATIVE: CASE EVENT DATE: 20181105
